FAERS Safety Report 5837725-7 (Version None)
Quarter: 2008Q3

REPORT INFORMATION
  Report Type: 
  Country: None (occurrence: None)
  Receive Date: 20080807
  Receipt Date: 20080728
  Transmission Date: 20090109
  Serious: Yes (Life-Threatening)
  Sender: FDA-Public Use
  Company Number: US-MERCK-0807USA03902

PATIENT
  Age: 54 Year
  Sex: Female
  Weight: 55 kg

DRUGS (4)
  1. SINGULAIR [Suspect]
     Indication: SINUS DISORDER
     Route: 048
     Dates: start: 20050101
  2. SINGULAIR [Suspect]
     Indication: HYPERSENSITIVITY
     Route: 048
     Dates: start: 20050101
  3. ZOLOFT [Concomitant]
     Indication: DEPRESSION
     Route: 065
  4. MUCINEX [Concomitant]
     Route: 065

REACTIONS (1)
  - SUICIDAL IDEATION [None]
